FAERS Safety Report 14748701 (Version 1)
Quarter: 2018Q2

REPORT INFORMATION
  Report Type: Spontaneous
  Country: US (occurrence: US)
  Receive Date: 20180411
  Receipt Date: 20180411
  Transmission Date: 20180711
  Serious: No
  Sender: FDA-Public Use
  Company Number: US-AMGEN-USASP2017167216

PATIENT
  Age: 58 Year
  Sex: Female
  Weight: 49.4 kg

DRUGS (5)
  1. PROLIA [Suspect]
     Active Substance: DENOSUMAB
     Indication: OSTEOPOROSIS POSTMENOPAUSAL
     Dosage: 60 MG, Q6MO
     Route: 058
     Dates: start: 201503
  2. VITAMINS [Concomitant]
     Active Substance: VITAMINS
     Indication: OSTEOPOROSIS
     Dosage: UNK UNK, QD
     Dates: start: 2009
  3. VITAMIN D [Concomitant]
     Active Substance: CHOLECALCIFEROL
     Indication: OSTEOPOROSIS
     Dosage: UNK, BID
     Dates: start: 2009
  4. MULTIVITAMINS [Concomitant]
     Active Substance: VITAMINS
     Indication: OSTEOPOROSIS
     Dosage: UNK UNK, QD
     Dates: start: 2009
  5. CALCIUM [Concomitant]
     Active Substance: CALCIUM
     Indication: OSTEOPOROSIS
     Dosage: UNK UNK, BID
     Dates: start: 2009

REACTIONS (1)
  - Alopecia [Not Recovered/Not Resolved]
